FAERS Safety Report 15623926 (Version 4)
Quarter: 2019Q4

REPORT INFORMATION
  Report Type: Spontaneous
  Country: CA (occurrence: CA)
  Receive Date: 20181116
  Receipt Date: 20191028
  Transmission Date: 20200122
  Serious: Yes (Life-Threatening, Hospitalization, Other)
  Sender: FDA-Public Use
  Company Number: CA-TEVA-2018-CA-976218

PATIENT
  Age: 82 Year
  Sex: Female

DRUGS (12)
  1. LOXAPINE. [Concomitant]
     Active Substance: LOXAPINE
     Indication: ANXIETY DISORDER
     Route: 065
  2. HYDROCHLOROTHIAZIDE. [Suspect]
     Active Substance: HYDROCHLOROTHIAZIDE
     Indication: HYPERTENSION
     Route: 065
  3. RANITIDINE. [Concomitant]
     Active Substance: RANITIDINE
  4. ETOMIDATE. [Concomitant]
     Active Substance: ETOMIDATE
  5. RAMIPRIL. [Suspect]
     Active Substance: RAMIPRIL
     Indication: HYPERTENSION
     Route: 065
  6. METHYLPREDNISOLONE NOS [Concomitant]
     Active Substance: METHYLPREDNISOLONE
  7. ROCURONIUM [Concomitant]
     Active Substance: ROCURONIUM BROMIDE
  8. HYDROCHLOROTHIAZIDE. [Concomitant]
     Active Substance: HYDROCHLOROTHIAZIDE
     Indication: HYPERTENSION
     Route: 065
  9. AMLODIPINE [Concomitant]
     Active Substance: AMLODIPINE BESYLATE
  10. DIPHENHYDRAMINE. [Concomitant]
     Active Substance: DIPHENHYDRAMINE
  11. EPINEPHRINE. [Concomitant]
     Active Substance: EPINEPHRINE
  12. METHYLPREDNISOLONE SODIUM SUCCINATE FOR INJECTION [Concomitant]
     Active Substance: METHYLPREDNISOLONE SODIUM SUCCINATE

REACTIONS (2)
  - Angioedema [Unknown]
  - Drug hypersensitivity [Unknown]
